FAERS Safety Report 7880716-5 (Version None)
Quarter: 2011Q4

REPORT INFORMATION
  Report Type: 
  Country: None (occurrence: None)
  Receive Date: 20111101
  Receipt Date: 20111022
  Transmission Date: 20120403
  Serious: Yes (Other)
  Sender: FDA-Public Use
  Company Number: US-JNJFOC-20111010779

PATIENT

DRUGS (1)
  1. REMICADE [Suspect]
     Indication: IRRITABLE BOWEL SYNDROME
     Route: 042

REACTIONS (1)
  - ACUTE FEBRILE NEUTROPHILIC DERMATOSIS [None]
